FAERS Safety Report 15136732 (Version 1)
Quarter: 2018Q3

REPORT INFORMATION
  Report Type: Spontaneous
  Country: US (occurrence: US)
  Receive Date: 20180712
  Receipt Date: 20180712
  Transmission Date: 20181010
  Serious: No
  Sender: FDA-Public Use
  Company Number: US-TARO-2017TAR00670

PATIENT
  Age: 62 Year
  Sex: Female
  Weight: 60.77 kg

DRUGS (3)
  1. ACETAZOLAMIDE TABLETS 125 MG [Suspect]
     Active Substance: ACETAZOLAMIDE
     Indication: HYPOBARISM
     Dosage: 125 MG, UP TO 2X/DAY AS NEEDED
     Route: 048
     Dates: start: 201707, end: 2017
  2. GLUCOSAMINE [Concomitant]
     Active Substance: GLUCOSAMINE
     Dosage: UNK, 2000?3000 MG 1X/DAY
  3. ACETAZOLAMIDE TABLETS 125 MG [Suspect]
     Active Substance: ACETAZOLAMIDE
     Dosage: 125 MG, UP TO 2X/DAY AS NEEDED
     Route: 048
     Dates: start: 20170807

REACTIONS (3)
  - Feeling abnormal [Not Recovered/Not Resolved]
  - Muscle spasms [Not Recovered/Not Resolved]
  - Headache [Not Recovered/Not Resolved]

NARRATIVE: CASE EVENT DATE: 201707
